FAERS Safety Report 9267506 (Version 2)
Quarter: 2013Q3

REPORT INFORMATION
  Report Type: Spontaneous
  Country: US (occurrence: US)
  Receive Date: 20130502
  Receipt Date: 20130717
  Transmission Date: 20140515
  Serious: Yes (Hospitalization, Other)
  Sender: FDA-Public Use
  Company Number: US-BAYER-2013-054250

PATIENT
  Age: 40 Year
  Sex: Female
  Weight: 59 kg

DRUGS (1)
  1. MIRENA [Suspect]
     Indication: CONTRACEPTION
     Dosage: 20 MCG/24HR, CONT
     Route: 015
     Dates: start: 20100909, end: 20130426

REACTIONS (5)
  - Haemorrhage in pregnancy [None]
  - Pregnancy with contraceptive device [None]
  - Blighted ovum [Recovered/Resolved]
  - Drug ineffective [None]
  - Hypomenorrhoea [None]
